FAERS Safety Report 6842017-3 (Version None)
Quarter: 2010Q3

REPORT INFORMATION
  Report Type: 
  Country: None (occurrence: None)
  Receive Date: 20100714
  Receipt Date: 20070711
  Transmission Date: 20110219
  Serious: No
  Sender: FDA-Public Use
  Company Number: US-PFIZER INC-2007061100

PATIENT
  Sex: Male

DRUGS (2)
  1. CHANTIX [Suspect]
  2. TOPROL-XL [Concomitant]
     Indication: HYPERTENSION

REACTIONS (1)
  - TREMOR [None]
